FAERS Safety Report 5426364-8 (Version None)
Quarter: 2007Q3

REPORT INFORMATION
  Report Type: 
  Country: None (occurrence: None)
  Receive Date: 20070827
  Receipt Date: 20070815
  Transmission Date: 20080115
  Serious: Yes (Hospitalization, Other)
  Sender: FDA-Public Use
  Company Number: US-PFIZER INC-2007067109

PATIENT
  Sex: Male
  Weight: 83.5 kg

DRUGS (1)
  1. SUTENT [Suspect]
     Indication: ADENOCARCINOMA PANCREAS
     Route: 048

REACTIONS (3)
  - ASPARTATE AMINOTRANSFERASE [None]
  - CYSTITIS [None]
  - INFECTION [None]
